FAERS Safety Report 4313899-4 (Version None)
Quarter: 2004Q1

REPORT INFORMATION
  Report Type: 
  Country: None (occurrence: None)
  Receive Date: 20040305
  Receipt Date: 20040216
  Transmission Date: 20041129
  Serious: Yes (Hospitalization)
  Sender: FDA-Public Use
  Company Number: BE-JNJFOC-20040203521

PATIENT
  Age: 84 Year
  Sex: Male

DRUGS (4)
  1. PREPULSID (CISAPRIDE) TABLETS [Suspect]
     Indication: IMPAIRED GASTRIC EMPTYING
     Dosage: 20 MG, 3 IN 1 DAY; UNKNOWN
     Route: 065
     Dates: start: 20030318, end: 20030923
  2. MOVICOL (TABLETS) NULYTELY [Concomitant]
  3. DAFALGAN (UNKNOWN) PARACETAMOL [Concomitant]
  4. ... [Concomitant]

REACTIONS (5)
  - CHOLECYSTITIS [None]
  - DEHYDRATION [None]
  - OESOPHAGITIS [None]
  - SEPSIS [None]
  - SHOCK [None]
